FAERS Safety Report 9384768 (Version 3)
Quarter: 2013Q3

REPORT INFORMATION
  Report Type: Report from Study
  Country: IT (occurrence: IT)
  Receive Date: 20130705
  Receipt Date: 20130806
  Transmission Date: 20140515
  Serious: Yes (Death)
  Sender: FDA-Public Use
  Company Number: IT-PFIZER INC-2013197385

PATIENT
  Age: 55 Year
  Sex: Male
  Weight: 83 kg

DRUGS (9)
  1. MEDROL [Suspect]
     Indication: PROPHYLAXIS AGAINST TRANSPLANT REJECTION
     Dosage: 4 MG, DAILY
     Route: 048
     Dates: start: 20080331, end: 20091106
  2. CERTICAN [Suspect]
     Indication: PROPHYLAXIS AGAINST TRANSPLANT REJECTION
     Dosage: 1.5 MG, DAILY
     Route: 048
     Dates: start: 20080331, end: 20091106
  3. SANDIMMUN NEORAL [Suspect]
     Indication: PROPHYLAXIS AGAINST TRANSPLANT REJECTION
     Dosage: 50 MG, DAILY
     Route: 048
     Dates: start: 20080331, end: 20091106
  4. TENORMIN [Concomitant]
     Dosage: 100 MG, UNK
     Route: 048
  5. ANTRA [Concomitant]
     Dosage: 40 MG, UNK
     Route: 048
  6. INEGY [Concomitant]
     Dosage: 10 MG, UNK
     Route: 048
  7. CARDIOASPIRIN [Concomitant]
     Dosage: 100 MG, UNK
     Route: 048
  8. CARDURA [Concomitant]
     Dosage: 8 MG, UNK
     Route: 048
  9. ESKIM [Concomitant]
     Dosage: 500 MG, 1X/DAY
     Route: 048

REACTIONS (2)
  - Bronchopneumopathy [Fatal]
  - Infection [Fatal]
